FAERS Safety Report 17840935 (Version 1)
Quarter: 2020Q2

REPORT INFORMATION
  Report Type: Spontaneous
  Country: CN (occurrence: CN)
  Receive Date: 20200529
  Receipt Date: 20200529
  Transmission Date: 20200714
  Serious: Yes (Hospitalization)
  Sender: FDA-Public Use
  Company Number: CN-BAXTER-2020BAX010910

PATIENT
  Age: 6 Year
  Sex: Male
  Weight: 16.1 kg

DRUGS (18)
  1. 0.9% SODIUM CHLORIDE INJECTION [Suspect]
     Active Substance: SODIUM CHLORIDE
     Dosage: DOSE RE-INTRODUCED, IFOSFAMIDE + 0.9 % SODIUM CHLORIDE (NS)
     Route: 041
     Dates: start: 202005
  2. 0.9% SODIUM CHLORIDE INJECTION [Suspect]
     Active Substance: SODIUM CHLORIDE
     Indication: MEDICATION DILUTION
     Dosage: D1-2, ACTINOMYCIN D 0.52 MG + 0.9 % SODIUM CHLORIDE (NS)
     Route: 042
     Dates: start: 20200513, end: 20200514
  3. 0.9% SODIUM CHLORIDE INJECTION [Suspect]
     Active Substance: SODIUM CHLORIDE
     Dosage: DOSE RE-INTRODUCED, VINCRISTINE SULFATE + 0.9 % SODIUM CHLORIDE (NS)
     Route: 042
     Dates: start: 202005
  4. MESNA. [Suspect]
     Active Substance: MESNA
     Dosage: DOSE RE-INTRODUCED
     Route: 041
     Dates: start: 202005
  5. ONDANSETRON HYDROCHLORIDE. [Suspect]
     Active Substance: ONDANSETRON HYDROCHLORIDE
     Indication: ANTIEMETIC SUPPORTIVE CARE
     Dosage: DAY 1-2, ONDANSETRON + 0.9 % SODIUM CHLORIDE (NS) 25 ML
     Route: 042
     Dates: start: 20200513, end: 20200514
  6. ONDANSETRON HYDROCHLORIDE. [Suspect]
     Active Substance: ONDANSETRON HYDROCHLORIDE
     Dosage: DOSE RE-INTRODUCED, ONDANSETRON + 0.9 % SODIUM CHLORIDE (NS)
     Route: 042
     Dates: start: 202005
  7. 0.9% SODIUM CHLORIDE INJECTION [Suspect]
     Active Substance: SODIUM CHLORIDE
     Dosage: DOSE RE-INTRODUCED, ACTINOMYCIN D + 0.9 % SODIUM CHLORIDE (NS)
     Route: 042
     Dates: start: 202005
  8. ACTINOMYCIN D [Suspect]
     Active Substance: DACTINOMYCIN
     Indication: PRIMITIVE NEUROECTODERMAL TUMOUR
     Dosage: D1-2, ACTINOMYCIN D + 0.9 % SODIUM CHLORIDE (NS) 10 ML
     Route: 042
     Dates: start: 20200513, end: 20200514
  9. HOLOXAN [Suspect]
     Active Substance: IFOSFAMIDE
     Dosage: DOSE RE-INTRODUCED, IFOSFAMIDE + 0.9 % SODIUM CHLORIDE (NS)
     Route: 041
     Dates: start: 202005
  10. 0.9% SODIUM CHLORIDE INJECTION [Suspect]
     Active Substance: SODIUM CHLORIDE
     Dosage: DAY 1, VINCRISTINE SULFATE 1 MG + 0.9 % SODIUM CHLORIDE (NS)
     Route: 042
     Dates: start: 20200513, end: 20200513
  11. 0.9% SODIUM CHLORIDE INJECTION [Suspect]
     Active Substance: SODIUM CHLORIDE
     Dosage: DAY 1-2, ONDANSETRON 3.5 MG + 0.9 % SODIUM CHLORIDE (NS)
     Route: 042
     Dates: start: 20200513, end: 20200514
  12. 0.9% SODIUM CHLORIDE INJECTION [Suspect]
     Active Substance: SODIUM CHLORIDE
     Dosage: D1-2, IFOSFAMIDE 2070 MG + 0.9 % SODIUM CHLORIDE (NS)
     Route: 041
     Dates: start: 20200513, end: 20200514
  13. HOLOXAN [Suspect]
     Active Substance: IFOSFAMIDE
     Indication: PRIMITIVE NEUROECTODERMAL TUMOUR
     Dosage: D1-2, IFOSFAMIDE + 0.9 % SODIUM CHLORIDE (NS) 259 ML
     Route: 041
     Dates: start: 20200513, end: 20200514
  14. 0.9% SODIUM CHLORIDE INJECTION [Suspect]
     Active Substance: SODIUM CHLORIDE
     Dosage: DOSE RE-INTRODUCED, ONDANSETRON  + 0.9 % SODIUM CHLORIDE (NS)
     Route: 042
     Dates: start: 202005
  15. ACTINOMYCIN D [Suspect]
     Active Substance: DACTINOMYCIN
     Dosage: DOSE REINTRODUCED, ACTINOMYCIN D + 0.9 % SODIUM CHLORIDE (NS)
     Route: 042
     Dates: start: 202005
  16. VINCRISTINE SULFATE. [Suspect]
     Active Substance: VINCRISTINE SULFATE
     Indication: PRIMITIVE NEUROECTODERMAL TUMOUR
     Dosage: DAY 1, VINCRISTINE SULFATE + 0.9 % SODIUM CHLORIDE (NS) 20 ML
     Route: 042
     Dates: start: 20200513, end: 20200513
  17. VINCRISTINE SULFATE. [Suspect]
     Active Substance: VINCRISTINE SULFATE
     Dosage: DOSE RE-INTRODUCED, VINCRISTINE SULFATE + 0.9 % SODIUM CHLORIDE (NS)
     Route: 042
     Dates: start: 202005
  18. MESNA. [Suspect]
     Active Substance: MESNA
     Indication: PROPHYLAXIS
     Dosage: D1-2
     Route: 041
     Dates: start: 20200513, end: 20200514

REACTIONS (1)
  - White blood cell count decreased [Unknown]

NARRATIVE: CASE EVENT DATE: 20200515
